FAERS Safety Report 5470683-6 (Version None)
Quarter: 2007Q3

REPORT INFORMATION
  Report Type: 
  Country: None (occurrence: None)
  Receive Date: 20070928
  Receipt Date: 20070913
  Transmission Date: 20080115
  Serious: Yes (Hospitalization)
  Sender: FDA-Public Use
  Company Number: PHHO2007US15298

PATIENT
  Age: 57 Year
  Sex: Female
  Weight: 67.4 kg

DRUGS (4)
  1. FLUVASTATIN VS ACETAMINOPHEN VS PLACEBO [Suspect]
     Indication: PROPHYLAXIS
     Dosage: DOUBLE BLIND
     Route: 048
  2. RECLAST [Suspect]
     Indication: OSTEOPOROSIS POSTMENOPAUSAL
     Dosage: 5 MG, ONCE/SINGLE
     Route: 042
     Dates: start: 20070910, end: 20070910
  3. CALCIUM [Concomitant]
  4. VITAMIN D3 [Concomitant]

REACTIONS (2)
  - CONVULSION [None]
  - PYREXIA [None]
